FAERS Safety Report 7425907-2 (Version None)
Quarter: 2011Q2

REPORT INFORMATION
  Report Type: 
  Country: None (occurrence: None)
  Receive Date: 20110420
  Receipt Date: 20110412
  Transmission Date: 20111010
  Serious: Yes (Hospitalization)
  Sender: FDA-Public Use
  Company Number: FR-ROCHE-765351

PATIENT
  Sex: Female
  Weight: 53 kg

DRUGS (39)
  1. PHOSPHONEUROS [Concomitant]
     Route: 048
     Dates: start: 20100525
  2. ROVALCYTE [Concomitant]
     Dosage: FREQUENCY: PER 48 HOUR
     Route: 048
     Dates: start: 20100706
  3. BICARBONATE DE SODIUM [Concomitant]
     Route: 048
     Dates: start: 20100702
  4. LANTUS [Concomitant]
     Route: 058
     Dates: start: 20110124
  5. NOVOMIX [Concomitant]
     Route: 058
     Dates: start: 20100811, end: 20100906
  6. ROVALCYTE [Concomitant]
     Dosage: TEMPORARILY DISCONTINUED FROM 28 JUN TO 05 JULY 2010
     Route: 048
     Dates: start: 20100521, end: 20100628
  7. DIFFU K [Concomitant]
     Dosage: TDD: 6 DOSES
     Route: 048
     Dates: start: 20100626
  8. INIPOMP [Concomitant]
     Route: 048
     Dates: start: 20100512
  9. XYZAL [Concomitant]
     Route: 048
     Dates: start: 20100915, end: 20100929
  10. LANTUS [Concomitant]
     Route: 058
     Dates: start: 20100907, end: 20101001
  11. EPREX [Concomitant]
     Route: 058
     Dates: start: 20100803
  12. IMMUNE GLOBULIN IV NOS [Concomitant]
     Dosage: REPORTED AS: CLAIRYG FREQ: DAILY
     Route: 042
     Dates: start: 20100926, end: 20100928
  13. ROCEPHIN [Concomitant]
     Route: 042
     Dates: start: 20100928, end: 20101016
  14. KARDEGIC [Concomitant]
     Dates: start: 20101026
  15. PREDNISONE [Suspect]
     Dosage: FREQUENCY: DAILY.
     Route: 048
     Dates: start: 20100518
  16. PROGRAF [Suspect]
     Route: 048
     Dates: start: 20100923
  17. AMLODIPINE BESYLATE [Concomitant]
     Route: 048
     Dates: start: 20100517
  18. AMLODIPINE BESYLATE [Concomitant]
     Route: 048
     Dates: start: 20100706
  19. DIFFU K [Concomitant]
     Route: 048
     Dates: start: 20110104
  20. INSULATARD [Concomitant]
     Dosage: TDD: 20+9 IU
     Dates: start: 20100703, end: 20100806
  21. NOVORAPID [Concomitant]
     Dosage: TDD: 8+8+8 IU
     Route: 058
     Dates: start: 20100628
  22. TAZOCILLINE [Concomitant]
     Dates: start: 20100628, end: 20100719
  23. EVEROLIMUS [Suspect]
     Dosage: DRUG DISCONTINUED
     Route: 048
     Dates: start: 20100516, end: 20100923
  24. PHOSPHONEUROS [Concomitant]
     Route: 048
     Dates: start: 20110127
  25. MAG 2 [Concomitant]
     Dosage: TDD: 2 DOSES
     Dates: start: 20100702
  26. INIPOMP [Concomitant]
     Route: 048
     Dates: start: 20100719
  27. NOVORAPID [Concomitant]
     Dosage: TDD: 3-4-3
     Route: 058
     Dates: start: 20110124
  28. CIFLOX [Concomitant]
     Dates: start: 20100628, end: 20100718
  29. LEXOMIL [Concomitant]
     Route: 048
     Dates: start: 20100923
  30. MABTHERA [Concomitant]
     Dosage: FREQ: DAILY
     Route: 042
     Dates: start: 20100926, end: 20100927
  31. FORLAX [Concomitant]
     Route: 048
     Dates: start: 20101001
  32. INIPOMP [Concomitant]
     Route: 048
     Dates: start: 20100515
  33. BICARBONATE DE SODIUM [Concomitant]
     Route: 048
     Dates: start: 20100703
  34. NOVORAPID [Concomitant]
     Route: 058
     Dates: start: 20100721, end: 20101001
  35. GENTAMICINE [Concomitant]
     Route: 042
     Dates: start: 20100928, end: 20101002
  36. MYCOPHENOLATE MOFETIL [Suspect]
     Dosage: FREQUENCY: DAILY.
     Route: 048
     Dates: start: 20100511
  37. ELISOR [Concomitant]
     Route: 048
     Dates: start: 20100522
  38. DIFFU K [Concomitant]
     Route: 048
     Dates: start: 20100628, end: 20100930
  39. LEXOMIL [Concomitant]
     Route: 048
     Dates: start: 20101002

REACTIONS (2)
  - TRANSPLANT REJECTION [None]
  - RENAL FAILURE ACUTE [None]
